FAERS Safety Report 9820984 (Version 1)
Quarter: 2014Q1

REPORT INFORMATION
  Report Type: Spontaneous
  Country: FR (occurrence: FR)
  Receive Date: 20140116
  Receipt Date: 20140116
  Transmission Date: 20141002
  Serious: Yes (Other)
  Sender: FDA-Public Use
  Company Number: FR-ABBVIE-14P-056-1188682-00

PATIENT
  Age: 18 Year
  Sex: Female

DRUGS (4)
  1. MICROPAKINE [Suspect]
     Indication: EPILEPSY
     Route: 048
     Dates: start: 1998, end: 2012
  2. MICROPAKINE [Suspect]
     Route: 048
     Dates: start: 201208, end: 201208
  3. MICROPAKINE [Suspect]
     Route: 048
     Dates: start: 201209
  4. MICROPAKINE [Suspect]
     Route: 048
     Dates: start: 201308, end: 201308

REACTIONS (3)
  - Withdrawal syndrome [Recovered/Resolved]
  - Sleep disorder [Recovered/Resolved]
  - Hallucination [Recovered/Resolved]
